FAERS Safety Report 21718691 (Version 1)
Quarter: 2022Q4

REPORT INFORMATION
  Report Type: Spontaneous
  Country: US (occurrence: US)
  Receive Date: 20221213
  Receipt Date: 20221213
  Transmission Date: 20230113
  Serious: Yes (Other)
  Sender: FDA-Public Use
  Company Number: US-SUN PHARMACEUTICAL INDUSTRIES LTD-2022R1-368226

PATIENT
  Age: 37 Year
  Sex: Male

DRUGS (1)
  1. GABAPENTIN [Suspect]
     Active Substance: GABAPENTIN
     Indication: Product used for unknown indication
     Dosage: 12 GRAM, DAILY
     Route: 065

REACTIONS (4)
  - Drug dependence [Unknown]
  - Withdrawal syndrome [Unknown]
  - Disease recurrence [Unknown]
  - Intentional product misuse [Unknown]
